FAERS Safety Report 5625777-9 (Version None)
Quarter: 2008Q1

REPORT INFORMATION
  Report Type: 
  Country: None (occurrence: None)
  Receive Date: 20080211
  Receipt Date: 20080131
  Transmission Date: 20080703
  Serious: Yes (Life-Threatening, Hospitalization)
  Sender: FDA-Public Use
  Company Number: 107#08#2008-00594

PATIENT
  Age: 65 Year
  Sex: Female

DRUGS (12)
  1. AMIODARONE HCL [Suspect]
     Indication: ATRIAL FLUTTER
     Dosage: 200 MG THREE TIMES A DAY FOR A WEEK, THEN TWICE A DAY FOR A WEEK, FOLLOWED BY ONCE DAILY ORAL
     Route: 048
  2. ZOPICLONE (ZOPICLONE) [Concomitant]
  3. PAROXETINE HCL [Concomitant]
  4. MOVICOL (MOVICOL) [Concomitant]
  5. CALCICHEW (CALCICHEW) [Concomitant]
  6. RAMIPRIL [Concomitant]
  7. LEVOTHYROXINE SODIUM [Concomitant]
  8. CHLORPHENAMINE (CHLORPHENAMINE) [Concomitant]
  9. FUROSEMIDE [Concomitant]
  10. INSULATARD (INSULATARD) [Concomitant]
  11. NOVIRAPID (NOVIRAPID) [Concomitant]
  12. BISOPROLOL FUMARATE [Concomitant]

REACTIONS (5)
  - BLOOD MAGNESIUM DECREASED [None]
  - BRADYCARDIA [None]
  - ELECTROCARDIOGRAM QT PROLONGED [None]
  - SYNCOPE [None]
  - TORSADE DE POINTES [None]
